FAERS Safety Report 13609373 (Version 4)
Quarter: 2017Q3

REPORT INFORMATION
  Report Type: Spontaneous
  Country: US (occurrence: US)
  Receive Date: 20170602
  Receipt Date: 20170807
  Transmission Date: 20171127
  Serious: Yes (Other)
  Sender: FDA-Public Use
  Company Number: US-CELGENEUS-USA-20170509751

PATIENT
  Age: 71 Year
  Sex: Female

DRUGS (4)
  1. POMALYST [Suspect]
     Active Substance: POMALIDOMIDE
     Indication: PLASMA CELL MYELOMA
     Dosage: 2 MILLIGRAM
     Route: 048
     Dates: start: 20161209
  2. POMALYST [Suspect]
     Active Substance: POMALIDOMIDE
     Dosage: .75 MILLIGRAM
     Route: 048
     Dates: start: 201705
  3. TYLENOL EXTRA STRENGTH [Concomitant]
     Active Substance: ACETAMINOPHEN
     Indication: PRODUCT USED FOR UNKNOWN INDICATION
     Route: 065
  4. VITAMIN D [Concomitant]
     Active Substance: CHOLECALCIFEROL
     Indication: PRODUCT USED FOR UNKNOWN INDICATION
     Route: 065

REACTIONS (7)
  - Sciatica [Recovered/Resolved with Sequelae]
  - Depression [Unknown]
  - Muscle spasms [Unknown]
  - Pain in extremity [Unknown]
  - Musculoskeletal pain [Unknown]
  - Pain [Unknown]
  - Spinal column stenosis [Recovered/Resolved with Sequelae]

NARRATIVE: CASE EVENT DATE: 201612
